FAERS Safety Report 11442259 (Version 1)
Quarter: 2015Q3

REPORT INFORMATION
  Report Type: Spontaneous
  Country: JP (occurrence: JP)
  Receive Date: 20150901
  Receipt Date: 20150901
  Transmission Date: 20151125
  Serious: Yes (Hospitalization)
  Sender: FDA-Public Use
  Company Number: GXJP2015JP001035

PATIENT
  Age: 93 Year
  Sex: Male

DRUGS (1)
  1. CEFTRIAXONE NA FOR INTRAVENOUS INJECTION [Suspect]
     Active Substance: CEFTRIAXONE
     Indication: PNEUMONIA ASPIRATION
     Dosage: 2 G, QD
     Route: 042

REACTIONS (4)
  - Nephrogenic diabetes insipidus [Recovering/Resolving]
  - Polyuria [Recovering/Resolving]
  - Thirst [Recovering/Resolving]
  - Urine osmolarity decreased [Recovering/Resolving]
